FAERS Safety Report 4969052-4 (Version None)
Quarter: 2006Q2

REPORT INFORMATION
  Report Type: 
  Country: None (occurrence: None)
  Receive Date: 20060411
  Receipt Date: 20051026
  Transmission Date: 20061013
  Serious: Yes (Hospitalization)
  Sender: FDA-Public Use
  Company Number: US-MERCK-0510USA09447

PATIENT
  Age: 77 Year
  Sex: Female
  Weight: 61 kg

DRUGS (22)
  1. VIOXX [Suspect]
     Route: 048
     Dates: start: 20021125, end: 20040416
  2. LANOXIN [Concomitant]
     Route: 065
  3. HYDROCHLOROTHIAZIDE [Concomitant]
     Route: 065
  4. FOLIC ACID [Concomitant]
     Route: 065
  5. COUMADIN [Concomitant]
     Route: 065
  6. METHOTREXATE [Concomitant]
     Route: 065
  7. REMICADE [Concomitant]
     Route: 065
  8. PLAVIX [Concomitant]
     Route: 065
  9. LISINOPRIL [Concomitant]
     Route: 065
  10. PLAQUENIL [Concomitant]
     Route: 065
  11. PREDNISONE [Concomitant]
     Route: 065
  12. VICODIN [Concomitant]
     Route: 065
  13. AVELOX [Concomitant]
     Route: 065
  14. NYSTATIN [Concomitant]
     Route: 065
  15. SUCRALFATE [Concomitant]
     Route: 065
  16. MECLIZINE [Concomitant]
     Route: 065
  17. NEXIUM [Concomitant]
     Route: 065
  18. FLONASE [Concomitant]
     Route: 065
  19. BENZONATATE [Concomitant]
     Route: 065
  20. NALEX-A [Concomitant]
     Route: 065
  21. CRESTOR [Concomitant]
     Route: 065
  22. DARVOCET [Concomitant]
     Route: 065

REACTIONS (1)
  - CEREBROVASCULAR ACCIDENT [None]
